FAERS Safety Report 8380871-7 (Version None)
Quarter: 2012Q2

REPORT INFORMATION
  Report Type: 
  Country: None (occurrence: None)
  Receive Date: 20120523
  Receipt Date: 20120517
  Transmission Date: 20120825
  Serious: Yes (Hospitalization)
  Sender: FDA-Public Use
  Company Number: KR-MERCK-1205USA02651

PATIENT
  Age: 50 Year
  Sex: Female

DRUGS (6)
  1. JANUMET [Suspect]
     Indication: DIABETES MELLITUS
     Route: 048
     Dates: start: 20120101, end: 20120401
  2. DEXAMETHASONE [Concomitant]
     Route: 065
  3. JANUVIA [Suspect]
     Indication: DIABETES MELLITUS
     Route: 048
     Dates: start: 20120417, end: 20120508
  4. DICHLOZID [Concomitant]
     Route: 065
  5. EXFORGE [Concomitant]
     Route: 065
  6. GLUCOPHAGE [Concomitant]
     Indication: DIABETES MELLITUS
     Route: 065
     Dates: start: 20120417, end: 20120508

REACTIONS (4)
  - INTERVERTEBRAL DISCITIS [None]
  - WRONG TECHNIQUE IN DRUG USAGE PROCESS [None]
  - STEVENS-JOHNSON SYNDROME [None]
  - INAPPROPRIATE SCHEDULE OF DRUG ADMINISTRATION [None]
